FAERS Safety Report 4969266-3 (Version None)
Quarter: 2006Q2

REPORT INFORMATION
  Report Type: 
  Country: None (occurrence: None)
  Receive Date: 20060405
  Receipt Date: 20060323
  Transmission Date: 20061013
  Serious: Yes (Other)
  Sender: FDA-Public Use
  Company Number: 2006041778

PATIENT
  Sex: Female

DRUGS (3)
  1. DILANTIN KAPSEAL [Suspect]
     Indication: CONVULSION
     Dosage: 400 MG (100 MG, 2 IN 1 D), ORAL
     Route: 048
     Dates: end: 19770101
  2. DIABINESE [Suspect]
     Indication: DIABETES MELLITUS
  3. PHENOBARBITAL TAB [Suspect]
     Indication: CONVULSION

REACTIONS (9)
  - BACK PAIN [None]
  - BODY HEIGHT DECREASED [None]
  - BREAST CANCER FEMALE [None]
  - CYSTITIS [None]
  - DIABETES MELLITUS [None]
  - IMPAIRED HEALING [None]
  - PAIN IN EXTREMITY [None]
  - SOMNOLENCE [None]
  - THYROID DISORDER [None]
